FAERS Safety Report 6706679-3 (Version None)
Quarter: 2010Q2

REPORT INFORMATION
  Report Type: 
  Country: None (occurrence: None)
  Receive Date: 20100503
  Receipt Date: 20100426
  Transmission Date: 20101027
  Serious: Yes (Hospitalization)
  Sender: FDA-Public Use
  Company Number: JP-ROCHE-699881

PATIENT
  Sex: Male
  Weight: 23.3 kg

DRUGS (12)
  1. TOCILIZUMAB [Suspect]
     Indication: JUVENILE ARTHRITIS
     Route: 041
     Dates: start: 20100119, end: 20100119
  2. TOCILIZUMAB [Suspect]
     Route: 041
     Dates: start: 20100127
  3. PREDONINE [Concomitant]
     Route: 048
     Dates: start: 20091116, end: 20091119
  4. PREDONINE [Concomitant]
     Route: 048
     Dates: start: 20091123, end: 20100126
  5. PREDONINE [Concomitant]
     Route: 048
     Dates: start: 20100127, end: 20100223
  6. PREDONINE [Concomitant]
     Route: 048
     Dates: start: 20100224, end: 20100323
  7. PREDONINE [Concomitant]
     Route: 048
     Dates: start: 20100324
  8. IBRUPROFEN [Concomitant]
     Dosage: DOSE FORM: PERORAL AGENT
     Route: 048
     Dates: start: 20091121
  9. NEORAL [Concomitant]
     Dosage: DOSE FORM: PERORAL AGENT
     Route: 048
     Dates: start: 20091128, end: 20100420
  10. FAMOTIDINE [Concomitant]
     Dosage: DOSE FORM: PERORAL AGENT
     Route: 048
     Dates: start: 20091201
  11. COTRIM [Concomitant]
     Dosage: DOSE FORM: GRANULATED POWDER
     Route: 048
     Dates: start: 20091202
  12. BONALON [Concomitant]
     Dosage: DRUG: BONALON 35MG
     Route: 048
     Dates: start: 20091205

REACTIONS (1)
  - ENTEROCOLITIS [None]
